FAERS Safety Report 10976008 (Version 1)
Quarter: 2015Q2

REPORT INFORMATION
  Report Type: Spontaneous
  Country: US (occurrence: US)
  Receive Date: 20150401
  Receipt Date: 20150401
  Transmission Date: 20150821
  Serious: Yes (Hospitalization, Other)
  Sender: FDA-Public Use
  Company Number: US-DSJP-DSU-2014-132262

PATIENT

DRUGS (1)
  1. BENICAR [Suspect]
     Active Substance: OLMESARTAN MEDOXOMIL
     Indication: PRODUCT USED FOR UNKNOWN INDICATION
     Dosage: UNK
     Route: 048

REACTIONS (14)
  - Thrombosis [Unknown]
  - Hip fracture [Unknown]
  - Oesophageal ulcer [Unknown]
  - Malabsorption [Unknown]
  - Wound [Unknown]
  - Fall [Unknown]
  - Diverticulitis [Unknown]
  - Atrial fibrillation [Unknown]
  - Urinary tract infection [Unknown]
  - Sepsis [Unknown]
  - Gastric ulcer haemorrhage [Unknown]
  - Small intestinal obstruction [Unknown]
  - Wrist fracture [Unknown]
  - Adrenal gland injury [Unknown]

NARRATIVE: CASE EVENT DATE: 20121226
